FAERS Safety Report 17175546 (Version 1)
Quarter: 2019Q4

REPORT INFORMATION
  Report Type: Report from Study
  Country: CZ (occurrence: CZ)
  Receive Date: 20191219
  Receipt Date: 20191219
  Transmission Date: 20200122
  Serious: Yes (Hospitalization, Other)
  Sender: FDA-Public Use
  Company Number: CZ-TEVA-2019-CZ-1152799

PATIENT
  Age: 64 Year

DRUGS (1)
  1. METFORMIN [Suspect]
     Active Substance: METFORMIN HYDROCHLORIDE
     Dosage: 2000
     Route: 048

REACTIONS (4)
  - Acute kidney injury [Unknown]
  - Hypovolaemia [Unknown]
  - Gastrointestinal disorder [Unknown]
  - Lactic acidosis [Unknown]

NARRATIVE: CASE EVENT DATE: 2009
